FAERS Safety Report 16205562 (Version 1)
Quarter: 2019Q2

REPORT INFORMATION
  Report Type: Spontaneous
  Country: CN (occurrence: CN)
  Receive Date: 20190417
  Receipt Date: 20190417
  Transmission Date: 20190711
  Serious: Yes (Death)
  Sender: FDA-Public Use
  Company Number: CN-ROCHE-2304815

PATIENT
  Age: 54 Year
  Sex: Female
  Weight: 65 kg

DRUGS (9)
  1. CYCLOPHOSPHAMIDE. [Concomitant]
     Active Substance: CYCLOPHOSPHAMIDE
     Indication: BREAST CANCER
     Route: 065
     Dates: start: 201601
  2. HERCEPTIN [Suspect]
     Active Substance: TRASTUZUMAB
     Indication: METASTASES TO LUNG
     Route: 042
     Dates: start: 2017
  3. EPIRUBICIN [Concomitant]
     Active Substance: EPIRUBICIN
     Indication: METASTASES TO LUNG
     Route: 065
     Dates: start: 201512
  4. EPIRUBICIN [Concomitant]
     Active Substance: EPIRUBICIN
     Indication: METASTASES TO LYMPH NODES
     Route: 065
     Dates: start: 201601
  5. CYCLOPHOSPHAMIDE. [Concomitant]
     Active Substance: CYCLOPHOSPHAMIDE
     Indication: METASTASES TO LYMPH NODES
  6. EPIRUBICIN [Concomitant]
     Active Substance: EPIRUBICIN
     Indication: BREAST CANCER
  7. HERCEPTIN [Suspect]
     Active Substance: TRASTUZUMAB
     Indication: METASTASES TO LYMPH NODES
  8. HERCEPTIN [Suspect]
     Active Substance: TRASTUZUMAB
     Indication: INVASIVE BREAST CARCINOMA
  9. CYCLOPHOSPHAMIDE. [Concomitant]
     Active Substance: CYCLOPHOSPHAMIDE
     Indication: METASTASES TO LUNG

REACTIONS (1)
  - Death [Fatal]
